FAERS Safety Report 20781815 (Version 2)
Quarter: 2022Q2

REPORT INFORMATION
  Report Type: Spontaneous
  Country: US (occurrence: US)
  Receive Date: 20220504
  Receipt Date: 20220506
  Transmission Date: 20220720
  Serious: No
  Sender: FDA-Public Use
  Company Number: US-NOVARTISTESTPH-NVSC2022US101545

PATIENT
  Sex: Female

DRUGS (1)
  1. ESTRADIOL [Suspect]
     Active Substance: ESTRADIOL
     Indication: Product used for unknown indication
     Dosage: 0.1 MG, BIW, (0.1MG/24H 8TTS)
     Route: 065

REACTIONS (4)
  - Erythema [Unknown]
  - Reaction to preservatives [Unknown]
  - Skin test positive [Unknown]
  - Pruritus [Unknown]
